FAERS Safety Report 23894790 (Version 1)
Quarter: 2024Q2

REPORT INFORMATION
  Report Type: Spontaneous
  Country: US (occurrence: US)
  Receive Date: 20240524
  Receipt Date: 20240524
  Transmission Date: 20240716
  Serious: Yes (Other)
  Sender: FDA-Public Use
  Company Number: US-AUROBINDO-AUR-APL-2024-024434

PATIENT
  Age: 9 Year
  Sex: Female

DRUGS (3)
  1. CETIRIZINE [Suspect]
     Active Substance: CETIRIZINE HYDROCHLORIDE
     Indication: Chronic spontaneous urticaria
     Dosage: 10 MILLIGRAM, TWO TIMES A DAY
     Route: 065
  2. TRIAMCINOLONE ACETONIDE [Suspect]
     Active Substance: TRIAMCINOLONE ACETONIDE
     Indication: Chronic spontaneous urticaria
     Dosage: UNK
     Route: 061
  3. CROMOLYN SODIUM [Suspect]
     Active Substance: CROMOLYN SODIUM
     Indication: Chronic spontaneous urticaria
     Dosage: UNK
     Route: 065

REACTIONS (1)
  - Drug ineffective [Unknown]
